FAERS Safety Report 4790141-1 (Version None)
Quarter: 2005Q4

REPORT INFORMATION
  Report Type: 
  Country: None (occurrence: None)
  Receive Date: 20051005
  Receipt Date: 20051005
  Transmission Date: 20060501
  Serious: Yes (Life-Threatening)
  Sender: FDA-Public Use
  Company Number: None

PATIENT
  Sex: Female
  Weight: 54 kg

DRUGS (12)
  1. REGULAR INSULIN [Suspect]
     Indication: HYPERGLYCAEMIA
     Dosage: 60 UNITS SQ
     Route: 058
     Dates: start: 20040702
  2. LEVOTHYROXINE [Concomitant]
  3. MAALOX FAST BLOCKER [Concomitant]
  4. MAGNESIUM SULFATE [Concomitant]
  5. OXYCODONE HCL [Concomitant]
  6. ASPIRIN [Concomitant]
  7. BISCODYL [Concomitant]
  8. DOCUSATE [Concomitant]
  9. GENTAMICIN [Concomitant]
  10. VANCOMYCIN [Concomitant]
  11. METOPROLOL [Concomitant]
  12. PRAVASTATIN [Concomitant]

REACTIONS (4)
  - BLOOD GLUCOSE DECREASED [None]
  - BLOOD GLUCOSE INCREASED [None]
  - INCORRECT DOSE ADMINISTERED [None]
  - POST PROCEDURAL COMPLICATION [None]
